FAERS Safety Report 8876234 (Version 1)
Quarter: 2012Q4

REPORT INFORMATION
  Report Type: 
  Country: SE (occurrence: SE)
  Receive Date: 20121030
  Receipt Date: 20121030
  Transmission Date: 20130627
  Serious: Yes (Hospitalization, Other)
  Sender: FDA-Public Use
  Company Number: PHHY2012SE096168

PATIENT
  Age: 87 Year
  Sex: Female

DRUGS (9)
  1. ALVEDON [Concomitant]
  2. KALCIPOS-D [Concomitant]
  3. OMEPRAZOL [Concomitant]
  4. ZOPIKLON [Concomitant]
  5. ALENDRONAT [Concomitant]
  6. BRUFEN [Concomitant]
  7. SOBRIL [Concomitant]
  8. AMLODIPIN [Concomitant]
  9. SPARKAL MITE [Suspect]
     Route: 048

REACTIONS (7)
  - Hyponatraemia [Unknown]
  - Activities of daily living impaired [Unknown]
  - Tremor [Unknown]
  - Dysstasia [Unknown]
  - Urine odour abnormal [Unknown]
  - Dysuria [Unknown]
  - Bladder spasm [Unknown]
